FAERS Safety Report 8380612-3 (Version None)
Quarter: 2012Q2

REPORT INFORMATION
  Report Type: 
  Country: None (occurrence: None)
  Receive Date: 20120523
  Receipt Date: 20120510
  Transmission Date: 20120825
  Serious: Yes (Hospitalization, Other)
  Sender: FDA-Public Use
  Company Number: US-ACTELION-A-CH2012-65751

PATIENT
  Age: 40 Year
  Sex: Male

DRUGS (4)
  1. TRACLEER [Suspect]
     Indication: PULMONARY ARTERIAL HYPERTENSION
     Dosage: UNK
     Route: 048
  2. TREPROSTINIL [Concomitant]
  3. EPOPROSTENOL SODIUM [Suspect]
     Indication: PULMONARY ARTERIAL HYPERTENSION
     Route: 042
  4. SILDENAFIL [Concomitant]

REACTIONS (6)
  - OXYGEN SATURATION DECREASED [None]
  - DISEASE PROGRESSION [None]
  - EXERCISE TEST ABNORMAL [None]
  - NO THERAPEUTIC RESPONSE [None]
  - PULMONARY ARTERIAL HYPERTENSION [None]
  - LUNG TRANSPLANT [None]
